FAERS Safety Report 24689536 (Version 1)
Quarter: 2024Q4

REPORT INFORMATION
  Report Type: Spontaneous
  Country: US (occurrence: US)
  Receive Date: 20241203
  Receipt Date: 20241203
  Transmission Date: 20250115
  Serious: Yes (Other)
  Sender: STALLERGENES
  Company Number: US-STALCOR-2024-AER-02692

PATIENT
  Age: 50 Year
  Sex: Male
  Weight: 73.48 kg

DRUGS (26)
  1. ALLERGENIC EXTRACT- GRASS [Suspect]
     Active Substance: ALLERGENIC EXTRACT- GRASS
     Indication: Hypersensitivity
     Route: 058
  2. ALLERGENIC EXTRACT- GRASS [Suspect]
     Active Substance: ALLERGENIC EXTRACT- GRASS
     Indication: Seasonal allergy
  3. STANDARDIZED CAT HAIR [Suspect]
     Active Substance: FELIS CATUS HAIR
     Indication: Hypersensitivity
     Route: 058
  4. STANDARDIZED CAT HAIR [Suspect]
     Active Substance: FELIS CATUS HAIR
     Indication: Seasonal allergy
  5. DERMATOPHAGOIDES FARINAE [Suspect]
     Active Substance: DERMATOPHAGOIDES FARINAE
     Indication: Hypersensitivity
     Route: 058
  6. DERMATOPHAGOIDES FARINAE [Suspect]
     Active Substance: DERMATOPHAGOIDES FARINAE
     Indication: Seasonal allergy
  7. DERMATOPHAGOIDES PTERONYSSINUS [Suspect]
     Active Substance: DERMATOPHAGOIDES PTERONYSSINUS
     Indication: Hypersensitivity
     Route: 058
  8. DERMATOPHAGOIDES PTERONYSSINUS [Suspect]
     Active Substance: DERMATOPHAGOIDES PTERONYSSINUS
     Indication: Seasonal allergy
  9. RAGWEED MIXTURE [Suspect]
     Active Substance: AMBROSIA ARTEMISIIFOLIA POLLEN\AMBROSIA BIDENTATA POLLEN\AMBROSIA PSILOSTACHYA POLLEN\AMBROSIA TRIFI
     Indication: Hypersensitivity
     Route: 058
  10. RAGWEED MIXTURE [Suspect]
     Active Substance: AMBROSIA ARTEMISIIFOLIA POLLEN\AMBROSIA BIDENTATA POLLEN\AMBROSIA PSILOSTACHYA POLLEN\AMBROSIA TRIFI
     Indication: Seasonal allergy
  11. LAMBS QUARTER [Suspect]
     Active Substance: CHENOPODIUM ALBUM POLLEN
     Indication: Hypersensitivity
     Route: 058
  12. LAMBS QUARTER [Suspect]
     Active Substance: CHENOPODIUM ALBUM POLLEN
     Indication: Seasonal allergy
  13. PLANTAGO MAJOR [Suspect]
     Active Substance: PLANTAGO MAJOR
     Indication: Hypersensitivity
     Route: 058
  14. PLANTAGO MAJOR [Suspect]
     Active Substance: PLANTAGO MAJOR
     Indication: Seasonal allergy
  15. MUGWORT [Suspect]
     Active Substance: ARTEMISIA VULGARIS POLLEN
     Indication: Hypersensitivity
     Route: 058
  16. MUGWORT [Suspect]
     Active Substance: ARTEMISIA VULGARIS POLLEN
     Indication: Seasonal allergy
  17. DOCK-SORREL MIX [Suspect]
     Active Substance: RUMEX ACETOSELLA POLLEN\RUMEX CRISPUS POLLEN
     Indication: Hypersensitivity
     Route: 058
  18. DOCK-SORREL MIX [Suspect]
     Active Substance: RUMEX ACETOSELLA POLLEN\RUMEX CRISPUS POLLEN
     Indication: Seasonal allergy
  19. REDROOT PIGWEED POLLEN [Suspect]
     Active Substance: AMARANTHUS RETROFLEXUS POLLEN
     Indication: Hypersensitivity
     Route: 058
  20. REDROOT PIGWEED POLLEN [Suspect]
     Active Substance: AMARANTHUS RETROFLEXUS POLLEN
     Indication: Seasonal allergy
  21. ANIMAL ALLERGENS, AP DOG HAIR AND DANDER CANIS SPP [Suspect]
     Active Substance: CANIS LUPUS FAMILIARIS DANDER\CANIS LUPUS FAMILIARIS HAIR
     Indication: Hypersensitivity
     Route: 058
  22. ANIMAL ALLERGENS, AP DOG HAIR AND DANDER CANIS SPP [Suspect]
     Active Substance: CANIS LUPUS FAMILIARIS DANDER\CANIS LUPUS FAMILIARIS HAIR
     Indication: Seasonal allergy
  23. DILUENT (SODIUM CHLORIDE) [Suspect]
     Active Substance: SODIUM CHLORIDE
     Indication: Hypersensitivity
     Route: 058
  24. DILUENT (SODIUM CHLORIDE) [Suspect]
     Active Substance: SODIUM CHLORIDE
     Indication: Seasonal allergy
  25. CLARITIN [Concomitant]
     Active Substance: LORATADINE
     Indication: Product used for unknown indication
     Dosage: AS NEEDED
  26. CANNABIS SATIVA SUBSP. INDICA TOP [Concomitant]
     Active Substance: CANNABIS SATIVA SUBSP. INDICA TOP
     Indication: Product used for unknown indication

REACTIONS (6)
  - Anaphylactic reaction [Recovered/Resolved]
  - Sneezing [Recovered/Resolved]
  - Lacrimation increased [Recovered/Resolved]
  - Throat irritation [Recovered/Resolved]
  - Wheezing [Recovered/Resolved]
  - Urticaria [Recovered/Resolved]

NARRATIVE: CASE EVENT DATE: 20240711
